FAERS Safety Report 10236275 (Version 2)
Quarter: 2014Q2

REPORT INFORMATION
  Report Type: Spontaneous
  Country: SE (occurrence: SE)
  Receive Date: 20140613
  Receipt Date: 20140620
  Transmission Date: 20141212
  Serious: Yes (Hospitalization)
  Sender: FDA-Public Use
  Company Number: SE-GLAXOSMITHKLINE-A1076608A

PATIENT
  Sex: Female

DRUGS (1)
  1. NICORETTE 2 MG [Suspect]
     Indication: SMOKING CESSATION THERAPY
     Route: 002
     Dates: start: 2004

REACTIONS (4)
  - Diarrhoea haemorrhagic [Unknown]
  - Extra dose administered [Unknown]
  - Intentional product misuse [Unknown]
  - Product quality issue [Unknown]
